FAERS Safety Report 9147178 (Version 1)
Quarter: 2013Q1

REPORT INFORMATION
  Report Type: Spontaneous
  Country: US (occurrence: US)
  Receive Date: 20130307
  Receipt Date: 20130307
  Transmission Date: 20140127
  Serious: Yes (Hospitalization)
  Sender: FDA-Public Use
  Company Number: US-BAYER-2013-028054

PATIENT
  Age: 47 Year
  Sex: Female
  Weight: 72.56 kg

DRUGS (15)
  1. YAZ [Suspect]
  2. YASMIN [Suspect]
  3. OCELLA [Suspect]
  4. RELPAX [Concomitant]
     Dosage: 40 MG, UNK
     Route: 048
  5. FLEXERIL [Concomitant]
     Indication: NECK PAIN
     Route: 048
  6. IBUPROFEN [Concomitant]
     Route: 048
  7. CIPRO [Concomitant]
     Indication: LYMPHADENOPATHY
     Route: 048
  8. DENAVIR [Concomitant]
     Route: 061
  9. PROTONIX [Concomitant]
     Route: 048
  10. VALTREX [Concomitant]
     Route: 048
  11. DARVOCET [Concomitant]
     Route: 048
  12. LORTAB [Concomitant]
     Indication: PAIN MANAGEMENT
     Dosage: UNK UNK, PRN
  13. IMITREX [Concomitant]
  14. PHENERGAN [Concomitant]
  15. TYLENOL [Concomitant]

REACTIONS (1)
  - Deep vein thrombosis [None]
